FAERS Safety Report 4627211-4 (Version None)
Quarter: 2005Q1

REPORT INFORMATION
  Report Type: 
  Country: None (occurrence: None)
  Receive Date: 20050331
  Receipt Date: 20050321
  Transmission Date: 20050727
  Serious: Yes (Death)
  Sender: FDA-Public Use
  Company Number: SUS1-2005-00218

PATIENT
  Age: 10 Year
  Sex: Male

DRUGS (1)
  1. ADDERALL 10 [Suspect]

REACTIONS (1)
  - SUDDEN DEATH [None]
